FAERS Safety Report 12484731 (Version 3)
Quarter: 2016Q3

REPORT INFORMATION
  Report Type: Spontaneous
  Country: KZ (occurrence: KZ)
  Receive Date: 20160621
  Receipt Date: 20160811
  Transmission Date: 20161109
  Serious: Yes (Life-Threatening)
  Sender: FDA-Public Use
  Company Number: KZ-JNJFOC-20160607205

PATIENT
  Age: 27 Year
  Sex: Male
  Weight: 50 kg

DRUGS (18)
  1. FLUCONAZOLE. [Concomitant]
     Active Substance: FLUCONAZOLE
     Route: 065
     Dates: start: 20160408, end: 20160411
  2. CLOFAZIMINE [Suspect]
     Active Substance: CLOFAZIMINE
     Indication: TUBERCULOSIS
     Route: 065
     Dates: end: 20160412
  3. POTASSIUM AND MAGNESIUM ASPARTATE [Concomitant]
     Route: 065
     Dates: start: 20160401, end: 20160404
  4. FERCAYL [Concomitant]
     Active Substance: IRON DEXTRAN
     Route: 065
     Dates: start: 20160404, end: 20160412
  5. METRONIDAZOLE. [Concomitant]
     Active Substance: METRONIDAZOLE
     Route: 065
     Dates: start: 20160411, end: 20160414
  6. BEDAQUILINE [Suspect]
     Active Substance: BEDAQUILINE
     Indication: TUBERCULOSIS
     Route: 048
     Dates: start: 20160331, end: 20160412
  7. ITRACONAZOL [Concomitant]
     Active Substance: ITRACONAZOLE
     Route: 065
     Dates: end: 20160407
  8. BEDAQUILINE [Suspect]
     Active Substance: BEDAQUILINE
     Indication: TUBERCULOSIS
     Route: 048
  9. IMIPENEM AND CILASTATIN [Suspect]
     Active Substance: CILASTATIN SODIUM\IMIPENEM
     Indication: TUBERCULOSIS
     Dosage: 100 UNSPECIFIED UNIT
     Route: 042
     Dates: end: 20160412
  10. AMBROXOL [Concomitant]
     Active Substance: AMBROXOL
     Route: 065
     Dates: start: 20160404, end: 20160414
  11. CLOFAZIMINE [Suspect]
     Active Substance: CLOFAZIMINE
     Indication: TUBERCULOSIS
     Route: 065
  12. LINEZOLID. [Suspect]
     Active Substance: LINEZOLID
     Indication: TUBERCULOSIS
     Route: 065
  13. AMOXICILLIN/CLAVULANIC ACID [Suspect]
     Active Substance: AMOXICILLIN\CLAVULANIC ACID
     Indication: TUBERCULOSIS
     Dosage: 2500 UNSPECIFIED UNIT
     Route: 065
     Dates: end: 20160412
  14. PIRACETAMUM [Concomitant]
     Route: 065
     Dates: start: 20160414
  15. ACETYLSALICYLIC ACID [Concomitant]
     Active Substance: ASPIRIN
     Route: 065
     Dates: start: 20160414
  16. LINEZOLID. [Suspect]
     Active Substance: LINEZOLID
     Indication: TUBERCULOSIS
     Dosage: 600 UNSPECIFIED UNIT
     Route: 065
     Dates: end: 20160412
  17. KREON [Concomitant]
     Active Substance: PANCRELIPASE
     Route: 065
     Dates: end: 20160411
  18. POTASSIUM AND MAGNESIUM ASPARTATE [Concomitant]
     Route: 065
     Dates: start: 20160408

REACTIONS (1)
  - Electrocardiogram QT prolonged [Recovered/Resolved]

NARRATIVE: CASE EVENT DATE: 20160412
